FAERS Safety Report 19487366 (Version 1)
Quarter: 2021Q3

REPORT INFORMATION
  Report Type: Report from Study
  Country: US (occurrence: US)
  Receive Date: 20210702
  Receipt Date: 20210702
  Transmission Date: 20211014
  Serious: Yes (Hospitalization)
  Sender: FDA-Public Use
  Company Number: US-EISAI MEDICAL RESEARCH-EC-2021-095256

PATIENT
  Age: 28 Year
  Sex: Male

DRUGS (1)
  1. LENVIMA [Suspect]
     Active Substance: LENVATINIB
     Indication: ADRENAL GLAND CANCER
     Route: 048
     Dates: start: 20210623

REACTIONS (8)
  - Blood pressure decreased [Unknown]
  - Fatigue [Unknown]
  - Product use in unapproved indication [Unknown]
  - Vomiting [Unknown]
  - Renal impairment [Unknown]
  - Heart rate increased [Unknown]
  - Diarrhoea [Unknown]
  - Nausea [Unknown]

NARRATIVE: CASE EVENT DATE: 20210628
